FAERS Safety Report 5036842-1 (Version None)
Quarter: 2006Q2

REPORT INFORMATION
  Report Type: 
  Country: None (occurrence: None)
  Receive Date: 20060622
  Receipt Date: 20060615
  Transmission Date: 20061013
  Serious: Yes (Other)
  Sender: FDA-Public Use
  Company Number: 200610628BWH

PATIENT
  Age: 83 Year
  Sex: Female
  Weight: 50.8029 kg

DRUGS (13)
  1. NEXAVAR [Suspect]
     Indication: METASTASES TO LUNG
     Dosage: SEE IMAGE
     Route: 048
     Dates: start: 20060101, end: 20060201
  2. NEXAVAR [Suspect]
     Indication: RENAL CELL CARCINOMA STAGE UNSPECIFIED
     Dosage: SEE IMAGE
     Route: 048
     Dates: start: 20060101, end: 20060201
  3. NEXAVAR [Suspect]
     Indication: METASTASES TO LUNG
     Dosage: SEE IMAGE
     Route: 048
     Dates: start: 20060201
  4. NEXAVAR [Suspect]
     Indication: RENAL CELL CARCINOMA STAGE UNSPECIFIED
     Dosage: SEE IMAGE
     Route: 048
     Dates: start: 20060201
  5. NEXAVAR [Suspect]
     Indication: METASTASES TO LUNG
     Dosage: SEE IMAGE
     Route: 048
     Dates: start: 20060201
  6. NEXAVAR [Suspect]
     Indication: RENAL CELL CARCINOMA STAGE UNSPECIFIED
     Dosage: SEE IMAGE
     Route: 048
     Dates: start: 20060201
  7. NEXAVAR [Suspect]
     Dosage: 200 MG, BID, ORAL
     Route: 048
     Dates: end: 20060425
  8. DIGOXIN [Concomitant]
  9. SPIRONOLACTONE [Concomitant]
  10. COZAAR [Concomitant]
  11. BISOPROLOL FUMARATE [Concomitant]
  12. ASPIRIN [Concomitant]
  13. MULTI-VITAMIN [Concomitant]

REACTIONS (11)
  - ASTHENIA [None]
  - BLOOD ERYTHROPOIETIN INCREASED [None]
  - CONFUSIONAL STATE [None]
  - DECREASED APPETITE [None]
  - FATIGUE [None]
  - GAIT DISTURBANCE [None]
  - HAEMOGLOBIN INCREASED [None]
  - MEMORY IMPAIRMENT [None]
  - PARANEOPLASTIC SYNDROME [None]
  - TRANSIENT ISCHAEMIC ATTACK [None]
  - WEIGHT DECREASED [None]
